FAERS Safety Report 5032190-4 (Version None)
Quarter: 2006Q2

REPORT INFORMATION
  Report Type: 
  Country: None (occurrence: None)
  Receive Date: 20060619
  Receipt Date: 20060609
  Transmission Date: 20061013
  Serious: Yes (Other)
  Sender: FDA-Public Use
  Company Number: US-2005-020717

PATIENT
  Age: 51 Year
  Sex: Female
  Weight: 61.2 kg

DRUGS (10)
  1. CLIMARA [Suspect]
     Indication: HORMONE REPLACEMENT THERAPY
     Dates: start: 19930101, end: 19980101
  2. CLIMARA [Suspect]
     Indication: MENOPAUSAL SYMPTOMS
     Dates: start: 19930101, end: 19980101
  3. PREMARIN [Suspect]
     Indication: HORMONE REPLACEMENT THERAPY
     Dates: start: 19930101, end: 19980101
  4. PREMARIN [Suspect]
     Indication: MENOPAUSAL SYMPTOMS
     Dates: start: 19930101, end: 19980101
  5. ESTRATAB [Suspect]
     Indication: HORMONE REPLACEMENT THERAPY
     Dates: start: 19930101, end: 19980101
  6. ESTRATAB [Suspect]
     Indication: MENOPAUSAL SYMPTOMS
     Dates: start: 19930101, end: 19980101
  7. PROVERA [Suspect]
     Indication: HORMONE REPLACEMENT THERAPY
  8. PROVERA [Suspect]
     Indication: MENOPAUSAL SYMPTOMS
  9. MEDROXYPROGESTERONE ACETATE [Suspect]
     Indication: HORMONE REPLACEMENT THERAPY
     Dates: start: 19930101, end: 19980101
  10. MEDROXYPROGESTERONE ACETATE [Suspect]
     Indication: MENOPAUSAL SYMPTOMS
     Dates: start: 19930101, end: 19980101

REACTIONS (7)
  - ANXIETY [None]
  - BREAST CANCER FEMALE [None]
  - BREAST CANCER IN SITU [None]
  - DEFORMITY [None]
  - DEPRESSION [None]
  - PAIN [None]
  - POLYTRAUMATISM [None]
